FAERS Safety Report 23711720 (Version 2)
Quarter: 2024Q2

REPORT INFORMATION
  Report Type: Spontaneous
  Country: US (occurrence: US)
  Receive Date: 20240405
  Receipt Date: 20240430
  Transmission Date: 20240716
  Serious: Yes (Other)
  Sender: FDA-Public Use
  Company Number: US-AMERICAN REGENT INC-2024001166

PATIENT
  Age: 52 Year
  Sex: Male

DRUGS (4)
  1. TESTOSTERONE CYPIONATE [Suspect]
     Active Substance: TESTOSTERONE CYPIONATE
     Indication: Androgen deficiency
     Dosage: VIAL 1: 1 DOSAGE FORM WEEKLY, TOOK ONE DOSE FROM THIS VIAL
     Dates: start: 202312, end: 202312
  2. TESTOSTERONE CYPIONATE [Suspect]
     Active Substance: TESTOSTERONE CYPIONATE
     Dosage: VIAL 2: 1 DOSAGE FORM WEEKLY, TOOK TWO DOSES FROM THIS VIAL
     Dates: start: 202402
  3. TESTOSTERONE CYPIONATE [Suspect]
     Active Substance: TESTOSTERONE CYPIONATE
     Dosage: VIAL 3: 1 DOSAGE FORM, WEEKLY, TOOK ONE DOSE FROM THIS VIAL
     Dates: start: 202403, end: 202403
  4. TESTOSTERONE CYPIONATE [Suspect]
     Active Substance: TESTOSTERONE CYPIONATE
     Dosage: UNK (FOR YEARS)

REACTIONS (5)
  - Abscess limb [Unknown]
  - Drug ineffective [Unknown]
  - Liquid product physical issue [Unknown]
  - Product storage error [Unknown]
  - Product administration error [Unknown]

NARRATIVE: CASE EVENT DATE: 20231201
